FAERS Safety Report 12265256 (Version 2)
Quarter: 2016Q2

REPORT INFORMATION
  Report Type: Spontaneous
  Country: US (occurrence: US)
  Receive Date: 20160413
  Receipt Date: 20160415
  Transmission Date: 20160815
  Serious: Yes (Other)
  Sender: FDA-Public Use
  Company Number: US-MDT-ADR-2016-00672

PATIENT
  Sex: Male

DRUGS (4)
  1. COMPOUNDED BACLOFEN [Suspect]
     Active Substance: BACLOFEN
     Dosage: 8.32 MCG/DAY
     Route: 037
  2. BUPIVACAINE. [Suspect]
     Active Substance: BUPIVACAINE
     Dosage: 0.832MG/DAY
     Route: 037
  3. DILAUDID [Suspect]
     Active Substance: HYDROMORPHONE HYDROCHLORIDE
     Dosage: 2.47 MG/DAY
     Route: 037
  4. CLONIDINE. [Suspect]
     Active Substance: CLONIDINE
     Dosage: 8.32 MCG/DAY
     Route: 037

REACTIONS (7)
  - Asthenia [Unknown]
  - Pain [Unknown]
  - Fall [Unknown]
  - Disease progression [Unknown]
  - Medical device site bruise [Unknown]
  - Medical device site swelling [Unknown]
  - Implant site extravasation [Unknown]
